FAERS Safety Report 6244206-8 (Version None)
Quarter: 2009Q2

REPORT INFORMATION
  Report Type: 
  Country: None (occurrence: None)
  Receive Date: 20090625
  Receipt Date: 20090615
  Transmission Date: 20091009
  Serious: Yes (Death, Hospitalization)
  Sender: FDA-Public Use
  Company Number: US-BIOGENIDEC-2009BI007637

PATIENT
  Age: 49 Year
  Sex: Female

DRUGS (2)
  1. TYSABRI [Suspect]
     Indication: MULTIPLE SCLEROSIS
     Route: 042
     Dates: start: 20060914, end: 20061109
  2. TYSABRI [Suspect]
     Dates: start: 20070620, end: 20080124

REACTIONS (16)
  - CHRONIC OBSTRUCTIVE PULMONARY DISEASE [None]
  - DELUSION [None]
  - DISEASE COMPLICATION [None]
  - DRUG DELIVERY DEVICE IMPLANTATION [None]
  - ENCEPHALOPATHY [None]
  - ESCHERICHIA SEPSIS [None]
  - ESCHERICHIA URINARY TRACT INFECTION [None]
  - INTERNATIONAL NORMALISED RATIO INCREASED [None]
  - KLEBSIELLA INFECTION [None]
  - MULTIPLE SCLEROSIS [None]
  - PROTHROMBIN TIME ABNORMAL [None]
  - PSEUDOMONAS INFECTION [None]
  - PSYCHOTIC DISORDER [None]
  - PULMONARY EMBOLISM [None]
  - STAPHYLOCOCCAL INFECTION [None]
  - UROSEPSIS [None]
